FAERS Safety Report 15685712 (Version 1)
Quarter: 2018Q4

REPORT INFORMATION
  Report Type: Spontaneous
  Country: FR (occurrence: FR)
  Receive Date: 20181204
  Receipt Date: 20181204
  Transmission Date: 20190205
  Serious: Yes (Hospitalization)
  Sender: FDA-Public Use
  Company Number: FR-TEVA-2018-FR-981490

PATIENT
  Age: 62 Year
  Sex: Male
  Weight: 103.2 kg

DRUGS (8)
  1. CARBOPLATINE [Suspect]
     Active Substance: CARBOPLATIN
     Indication: SMALL CELL LUNG CANCER
     Route: 042
     Dates: start: 20181024, end: 20181024
  2. TOUJEO 300 UNIT?S/ML, SOLUTION INJECTABLE EN STYLO PR?REMPLI [Concomitant]
     Route: 065
     Dates: start: 20181009
  3. INNOHEP [Concomitant]
     Active Substance: TINZAPARIN SODIUM
     Route: 065
     Dates: start: 20181016
  4. SOLUPRED 20 MG, COMPRIM? EFFERVESCENT [Concomitant]
     Active Substance: PREDNISOLONE SODIUM METAZOATE
     Route: 048
     Dates: start: 20180907
  5. NOVORAPID 100 U/ML, SOLUTION INJECTABLE EN FLACON [Concomitant]
     Route: 065
  6. ALPRAZOLAM MYLAN [Concomitant]
     Active Substance: ALPRAZOLAM
     Route: 065
  7. ETOPOPHOS [Suspect]
     Active Substance: ETOPOSIDE PHOSPHATE
     Indication: SMALL CELL LUNG CANCER
     Dosage: 200 MILLIGRAM DAILY;
     Route: 042
     Dates: start: 20181024, end: 20181026
  8. ATENOLOL ARROW [Concomitant]
     Active Substance: ATENOLOL
     Route: 065

REACTIONS (2)
  - Bone marrow failure [Recovering/Resolving]
  - Septic shock [Not Recovered/Not Resolved]

NARRATIVE: CASE EVENT DATE: 20181101
